FAERS Safety Report 6239764-3 (Version None)
Quarter: 2009Q2

REPORT INFORMATION
  Report Type: 
  Country: None (occurrence: None)
  Receive Date: 20090622
  Receipt Date: 20090612
  Transmission Date: 20091009
  Serious: Yes (Other)
  Sender: FDA-Public Use
  Company Number: US-SANOFI-SYNTHELABO-A03200902648

PATIENT
  Age: 85 Year
  Sex: Female

DRUGS (1)
  1. PLAVIX [Suspect]
     Indication: CEREBROVASCULAR ACCIDENT
     Route: 048

REACTIONS (3)
  - GINGIVAL BLEEDING [None]
  - HYPERTENSION [None]
  - POST PROCEDURAL INFECTION [None]
